FAERS Safety Report 19745323 (Version 1)
Quarter: 2021Q3

REPORT INFORMATION
  Report Type: Spontaneous
  Country: MX (occurrence: MX)
  Receive Date: 20210825
  Receipt Date: 20210825
  Transmission Date: 20211014
  Serious: Yes (Death, Hospitalization)
  Sender: FDA-Public Use
  Company Number: MX-INDIVIOR EUROPE LIMITED-INDV-130870-2021

PATIENT

DRUGS (1)
  1. TEMGESIC TABLET [Suspect]
     Active Substance: BUPRENORPHINE HYDROCHLORIDE
     Indication: PRODUCT USED FOR UNKNOWN INDICATION
     Dosage: UNK
     Route: 060

REACTIONS (2)
  - Death [Fatal]
  - Product dose omission in error [Unknown]

NARRATIVE: CASE EVENT DATE: 202107
